FAERS Safety Report 5689967-1 (Version None)
Quarter: 2008Q2

REPORT INFORMATION
  Report Type: 
  Country: None (occurrence: None)
  Receive Date: 20080401
  Receipt Date: 20080327
  Transmission Date: 20081010
  Serious: Yes (Death)
  Sender: FDA-Public Use
  Company Number: JP-JNJFOC-20071202642

PATIENT
  Sex: Female

DRUGS (19)
  1. DORIBAX [Suspect]
     Route: 041
  2. DORIBAX [Suspect]
     Indication: PNEUMONIA
     Route: 041
  3. VEEN-F [Concomitant]
     Route: 065
  4. POTACOL [Concomitant]
     Route: 065
  5. MULTAMIN [Concomitant]
     Indication: PARENTERAL NUTRITION
     Route: 065
  6. KAYTWO N [Concomitant]
     Route: 042
  7. PANTOSIN [Concomitant]
     Route: 065
  8. STRONGER NEO MINOPHAGEN C [Concomitant]
     Route: 065
  9. GLUCOSE [Concomitant]
     Route: 065
  10. SODIUM CHLORIDE [Concomitant]
     Route: 050
  11. ALTAT [Concomitant]
     Indication: GASTROINTESTINAL DISORDER THERAPY
     Route: 048
  12. AMINOLEBAN [Concomitant]
     Indication: HEPATIC FAILURE
     Route: 065
  13. POTASSIUM CHLORIDE [Concomitant]
     Route: 065
  14. ELEMENMIC [Concomitant]
     Route: 065
  15. REMINARON [Concomitant]
     Route: 065
  16. HUMULIN R [Concomitant]
     Route: 065
  17. ALBUMIN (HUMAN) [Concomitant]
     Route: 065
  18. TAZOCIN [Concomitant]
     Indication: INFECTION
     Route: 065
  19. MAXIPIME [Concomitant]
     Indication: INFECTION
     Route: 065

REACTIONS (3)
  - HEPATITIS FULMINANT [None]
  - INTERSTITIAL LUNG DISEASE [None]
  - RENAL FAILURE [None]
